FAERS Safety Report 25760956 (Version 1)
Quarter: 2025Q3

REPORT INFORMATION
  Report Type: Spontaneous
  Country: US (occurrence: US)
  Receive Date: 20250904
  Receipt Date: 20250904
  Transmission Date: 20251021
  Serious: No
  Sender: BIOMARIN
  Company Number: US-BIOMARINAP-US-2025-168446

PATIENT
  Sex: Male
  Weight: 62 kg

DRUGS (1)
  1. VOXZOGO [Suspect]
     Active Substance: VOSORITIDE
     Indication: Hypochondroplasia
     Dosage: , QD
     Dates: start: 20250610

REACTIONS (2)
  - Fatigue [Recovering/Resolving]
  - Off label use [Unknown]
